FAERS Safety Report 5553471-1 (Version None)
Quarter: 2007Q4

REPORT INFORMATION
  Report Type: 
  Country: None (occurrence: None)
  Receive Date: 20071213
  Receipt Date: 20071203
  Transmission Date: 20080405
  Serious: Yes (Hospitalization)
  Sender: FDA-Public Use
  Company Number: JP-JNJFOC-20071202108

PATIENT
  Age: 93 Year
  Sex: Female

DRUGS (3)
  1. DORIBAX [Suspect]
     Indication: DRUG USE FOR UNKNOWN INDICATION
     Route: 041
  2. FUNGUARD [Concomitant]
     Route: 041
  3. FAMOTIDINE [Concomitant]
     Route: 041

REACTIONS (1)
  - CEREBRAL HAEMORRHAGE [None]
